FAERS Safety Report 20643195 (Version 1)
Quarter: 2022Q1

REPORT INFORMATION
  Report Type: Spontaneous
  Country: US (occurrence: US)
  Receive Date: 20220328
  Receipt Date: 20220328
  Transmission Date: 20220423
  Serious: No
  Sender: FDA-Public Use
  Company Number: US-RECORDATI RARE DISEASE INC.-2021001474

PATIENT

DRUGS (1)
  1. CHEMET [Suspect]
     Active Substance: SUCCIMER
     Indication: Product used for unknown indication
     Dosage: UNKNOWN
     Route: 065

REACTIONS (2)
  - Therapy interrupted [Unknown]
  - Product availability issue [Unknown]
